FAERS Safety Report 5648514-0 (Version None)
Quarter: 2008Q1

REPORT INFORMATION
  Report Type: 
  Country: None (occurrence: None)
  Receive Date: 20080304
  Receipt Date: 20080225
  Transmission Date: 20080703
  Serious: Yes (Hospitalization, Other)
  Sender: FDA-Public Use
  Company Number: PHHY2008JP00981

PATIENT
  Age: 10 Year
  Sex: Male

DRUGS (8)
  1. TEGRETOL [Suspect]
     Indication: CONVULSION
     Dosage: UNK, UNK
     Route: 048
     Dates: start: 20040501
  2. TEGRETOL [Suspect]
     Dosage: 550MG/DAY
     Route: 048
     Dates: start: 20041201
  3. TEGRETOL [Suspect]
     Dosage: 450MG/DAY
     Route: 048
     Dates: start: 20050101
  4. TEGRETOL [Suspect]
     Dosage: 250MG/DAY
     Route: 048
     Dates: start: 20050301
  5. TEGRETOL [Suspect]
     Dosage: 500MG/DAY
     Route: 048
     Dates: start: 20050406
  6. TEGRETOL [Suspect]
     Dosage: 550MG
     Route: 048
     Dates: start: 20050425
  7. TEGRETOL [Suspect]
     Dosage: 450MG/DAY
     Route: 048
     Dates: start: 20050513
  8. TEGRETOL [Suspect]
     Dosage: 400MG/DAY
     Route: 048
     Dates: start: 20050602, end: 20070901

REACTIONS (10)
  - COGNITIVE DISORDER [None]
  - DEPRESSED LEVEL OF CONSCIOUSNESS [None]
  - ELECTROENCEPHALOGRAM ABNORMAL [None]
  - EPILEPSY [None]
  - GRAND MAL CONVULSION [None]
  - LEARNING DISORDER [None]
  - MECHANICAL VENTILATION [None]
  - PETIT MAL EPILEPSY [None]
  - RESPIRATORY ARREST [None]
  - STATUS EPILEPTICUS [None]
